FAERS Safety Report 4504551-0 (Version None)
Quarter: 2004Q4

REPORT INFORMATION
  Report Type: 
  Country: None (occurrence: None)
  Receive Date: 20041118
  Receipt Date: 20041108
  Transmission Date: 20050328
  Serious: Yes (Other)
  Sender: FDA-Public Use
  Company Number: US-BRISTOL-MYERS SQUIBB COMPANY-12759775

PATIENT
  Age: 53 Year
  Sex: Male

DRUGS (3)
  1. ATAZANAVIR [Suspect]
     Indication: HIV INFECTION
  2. TENOFOVIR DISOPROXIL FUMARATE [Suspect]
     Indication: HIV INFECTION
  3. ABACAVIR [Suspect]
     Indication: HIV INFECTION

REACTIONS (4)
  - FANCONI SYNDROME ACQUIRED [None]
  - NEPHROPATHY TOXIC [None]
  - RENAL FAILURE [None]
  - RENAL TUBULAR DISORDER [None]
